FAERS Safety Report 16588193 (Version 2)
Quarter: 2019Q3

REPORT INFORMATION
  Report Type: Spontaneous
  Country: IT (occurrence: IT)
  Receive Date: 20190717
  Receipt Date: 20190812
  Transmission Date: 20191004
  Serious: Yes (Death, Other)
  Sender: FDA-Public Use
  Company Number: IT-B.I. PHARMACEUTICALS,INC./RIDGEFIELD-2019-BI-029719

PATIENT
  Age: 69 Year
  Sex: Male

DRUGS (3)
  1. VARGATEF [Suspect]
     Active Substance: NINTEDANIB
     Indication: CHEMOTHERAPY
     Dosage: 200 MG
     Route: 065
     Dates: start: 20160216, end: 20160707
  2. VARGATEF [Suspect]
     Active Substance: NINTEDANIB
     Route: 065
     Dates: end: 20180505
  3. DOCETAXEL. [Suspect]
     Active Substance: DOCETAXEL
     Indication: CHEMOTHERAPY
     Dosage: DOCETAXEL  75 MG/MQ
     Route: 065
     Dates: start: 20160216, end: 20160707

REACTIONS (4)
  - Toxic neuropathy [Not Recovered/Not Resolved]
  - Haematotoxicity [Recovered/Resolved]
  - Disease progression [Fatal]
  - Multi-organ disorder [Fatal]

NARRATIVE: CASE EVENT DATE: 201603
